FAERS Safety Report 5695958-7 (Version None)
Quarter: 2008Q2

REPORT INFORMATION
  Report Type: 
  Country: None (occurrence: None)
  Receive Date: 20080407
  Receipt Date: 20080328
  Transmission Date: 20081010
  Serious: Yes (Other)
  Sender: FDA-Public Use
  Company Number: FR-ASTRAZENECA-2007CG01394

PATIENT
  Age: 28683 Day
  Sex: Female
  Weight: 90 kg

DRUGS (3)
  1. ARIMIDEX [Suspect]
     Indication: BREAST CANCER FEMALE
     Route: 048
     Dates: start: 20040114, end: 20070815
  2. XYLOCAINE [Suspect]
     Indication: LOCAL ANAESTHESIA
  3. BETADINE [Suspect]

REACTIONS (1)
  - TOXIC SKIN ERUPTION [None]
